FAERS Safety Report 18726510 (Version 1)
Quarter: 2021Q1

REPORT INFORMATION
  Report Type: Spontaneous
  Country: CA (occurrence: CA)
  Receive Date: 20210112
  Receipt Date: 20210112
  Transmission Date: 20210419
  Serious: Yes (Life-Threatening, Hospitalization, Other)
  Sender: FDA-Public Use
  Company Number: CA-ORION CORPORATION ORION PHARMA-21_00012482

PATIENT
  Age: 59 Year
  Sex: Male
  Weight: 72.56 kg

DRUGS (17)
  1. BENZYDAMINE [Concomitant]
     Active Substance: BENZYDAMINE
     Route: 065
  2. HYDROXYQUINE [Concomitant]
     Active Substance: HYDROXYCHLOROQUINE
     Route: 065
  3. AVAPRO [Concomitant]
     Active Substance: IRBESARTAN
     Route: 065
  4. METHOTREXATE. [Concomitant]
     Active Substance: METHOTREXATE
     Route: 065
  5. DILTIAZEM. [Concomitant]
     Active Substance: DILTIAZEM
     Route: 065
  6. ASPIRIN [ACETYLSALICYLIC ACID] [Concomitant]
     Active Substance: ASPIRIN
     Route: 065
  7. CLINDAMYCIN. [Concomitant]
     Active Substance: CLINDAMYCIN
     Route: 065
  8. CRESTOR [Concomitant]
     Active Substance: ROSUVASTATIN CALCIUM
     Route: 065
  9. FLOVENT [Concomitant]
     Active Substance: FLUTICASONE PROPIONATE
     Route: 065
  10. VENTOLIN [Concomitant]
     Active Substance: ALBUTEROL SULFATE
     Route: 065
  11. ADALAT CC [Concomitant]
     Active Substance: NIFEDIPINE
     Route: 065
  12. LANTUS [Concomitant]
     Active Substance: INSULIN GLARGINE
     Route: 065
  13. LYRICA [Concomitant]
     Active Substance: PREGABALIN
     Route: 065
  14. TECTA [Concomitant]
     Active Substance: PANTOPRAZOLE MAGNESIUM
     Route: 065
  15. METHOTREXATE (TRADE NAME UNKNOWN) [Suspect]
     Active Substance: METHOTREXATE
     Indication: POLYARTHRITIS
     Dosage: 2 EVERY 1 WEEKS
     Route: 048
  16. FOLIC ACID. [Concomitant]
     Active Substance: FOLIC ACID
     Route: 065
  17. JANUMET [Concomitant]
     Active Substance: METFORMIN HYDROCHLORIDE\SITAGLIPTIN PHOSPHATE
     Route: 065

REACTIONS (16)
  - Bronchitis pneumococcal [Unknown]
  - Pancytopenia [Unknown]
  - Red blood cell sedimentation rate increased [Unknown]
  - Blood urea abnormal [Unknown]
  - Cough [Unknown]
  - Blood creatinine abnormal [Unknown]
  - Asthenia [Unknown]
  - Oedema mouth [Unknown]
  - Stomatitis [Unknown]
  - Blood potassium abnormal [Unknown]
  - Dehydration [Unknown]
  - C-reactive protein increased [Unknown]
  - Dermatitis bullous [Unknown]
  - Oedema mucosal [Unknown]
  - Oral pain [Unknown]
  - Pyrexia [Unknown]
